FAERS Safety Report 13452604 (Version 1)
Quarter: 2017Q2

REPORT INFORMATION
  Report Type: Spontaneous
  Country: IT (occurrence: IT)
  Receive Date: 20170418
  Receipt Date: 20170418
  Transmission Date: 20170830
  Serious: Yes (Other)
  Sender: FDA-Public Use
  Company Number: IT-ROCHE-1920555

PATIENT
  Age: 59 Year
  Sex: Male

DRUGS (6)
  1. RIBAVIRIN. [Suspect]
     Active Substance: RIBAVIRIN
     Route: 065
     Dates: start: 2015
  2. DACLATASVIR. [Suspect]
     Active Substance: DACLATASVIR
     Indication: CHRONIC HEPATITIS C
     Dosage: 183 DAYS- PERIOD
     Route: 065
     Dates: start: 2015
  3. PEGINTERFERON ALFA-2B [Suspect]
     Active Substance: PEGINTERFERON ALFA-2B
     Indication: CHRONIC HEPATITIS C
     Dosage: 183 DAYS
     Route: 065
     Dates: start: 201607
  4. SOFOSBUVIR [Suspect]
     Active Substance: SOFOSBUVIR
     Indication: CHRONIC HEPATITIS C
     Dosage: 183 DAYS - PERIOD
     Route: 065
     Dates: start: 201607
  5. RIBAVIRIN. [Suspect]
     Active Substance: RIBAVIRIN
     Indication: CHRONIC HEPATITIS C
     Dosage: 183 DAYS - PERIOD
     Route: 065
     Dates: start: 201607
  6. SOFOSBUVIR [Suspect]
     Active Substance: SOFOSBUVIR
     Route: 065
     Dates: start: 2015

REACTIONS (7)
  - Alanine aminotransferase increased [Unknown]
  - Drug ineffective [Unknown]
  - Leukopenia [Unknown]
  - Asthenia [Unknown]
  - Anaemia [Unknown]
  - Gene mutation identification test positive [Unknown]
  - Hepatitis C [Unknown]
